FAERS Safety Report 14209918 (Version 1)
Quarter: 2017Q4

REPORT INFORMATION
  Report Type: Spontaneous
  Country: CN (occurrence: CN)
  Receive Date: 20171121
  Receipt Date: 20171121
  Transmission Date: 20180321
  Serious: Yes (Other)
  Sender: FDA-Public Use
  Company Number: CN-009507513-1711CHN007198

PATIENT
  Age: 4 Year
  Sex: Male
  Weight: 19 kg

DRUGS (3)
  1. SINGULAIR [Suspect]
     Active Substance: MONTELUKAST SODIUM
     Indication: RHINITIS ALLERGIC
     Dosage: 4 MG, QD
     Route: 048
     Dates: start: 20171107, end: 20171112
  2. NASONEX [Suspect]
     Active Substance: MOMETASONE FUROATE
     Dosage: UNK, 3 TIMES
  3. PU DI LAN XIAO YAN KOU FU YE [Concomitant]
     Dosage: UNK

REACTIONS (10)
  - Sleep talking [Recovering/Resolving]
  - Upper respiratory tract infection bacterial [Unknown]
  - Feeling hot [Unknown]
  - Pharyngitis [Unknown]
  - Abnormal behaviour [Recovering/Resolving]
  - Inflammation [Unknown]
  - Gait disturbance [Recovered/Resolved]
  - Swelling [Unknown]
  - Asthenia [Recovered/Resolved]
  - Lower respiratory tract infection bacterial [Unknown]

NARRATIVE: CASE EVENT DATE: 20171109
